FAERS Safety Report 11080812 (Version 1)
Quarter: 2015Q2

REPORT INFORMATION
  Report Type: Spontaneous
  Country: IT (occurrence: IT)
  Receive Date: 20150501
  Receipt Date: 20150501
  Transmission Date: 20150821
  Serious: Yes (Other)
  Sender: FDA-Public Use
  Company Number: IT-ACCORD-030408

PATIENT
  Age: 53 Year
  Sex: Female

DRUGS (1)
  1. CARBIDOPA/LEVODOPA [Suspect]
     Active Substance: CARBIDOPA\LEVODOPA
     Indication: PARKINSON^S DISEASE
     Dosage: DOSE: CARBIDOPA 100 MG,?LEVODOPA 25 MG
     Dates: start: 201307

REACTIONS (1)
  - Delusion of replacement [Recovering/Resolving]

NARRATIVE: CASE EVENT DATE: 201311
